FAERS Safety Report 23790079 (Version 1)
Quarter: 2024Q2

REPORT INFORMATION
  Report Type: Spontaneous
  Country: RU (occurrence: RU)
  Receive Date: 20240426
  Receipt Date: 20240426
  Transmission Date: 20240716
  Serious: Yes (Hospitalization)
  Sender: FDA-Public Use
  Company Number: RU-Eisai-EC-2024-164472

PATIENT
  Age: 56 Year
  Sex: Male

DRUGS (4)
  1. LENVATINIB [Suspect]
     Active Substance: LENVATINIB
     Indication: Renal cancer
     Route: 048
     Dates: start: 202009, end: 20220414
  2. LENVATINIB [Suspect]
     Active Substance: LENVATINIB
     Route: 048
     Dates: start: 20220503
  3. EVEROLIMUS [Concomitant]
     Active Substance: EVEROLIMUS
     Indication: Renal cancer
     Dosage: FREQUENCY UNKNOWN
     Route: 048
     Dates: start: 202009, end: 20220414
  4. EVEROLIMUS [Concomitant]
     Active Substance: EVEROLIMUS
     Dosage: FREQUENCY UNKNOWN
     Route: 048
     Dates: start: 20220503

REACTIONS (2)
  - Tubulointerstitial nephritis [Recovered/Resolved]
  - Acute kidney injury [Recovered/Resolved]

NARRATIVE: CASE EVENT DATE: 20220401
